FAERS Safety Report 17817080 (Version 10)
Quarter: 2020Q4

REPORT INFORMATION
  Report Type: Spontaneous
  Country: IT (occurrence: IT)
  Receive Date: 20200522
  Receipt Date: 20201106
  Transmission Date: 20210113
  Serious: Yes (Death, Hospitalization, Other)
  Sender: FDA-Public Use
  Company Number: IT-MYLANLABS-2020M1050465

PATIENT
  Age: 21 Year
  Sex: Male

DRUGS (15)
  1. CANCIDAS [Suspect]
     Active Substance: CASPOFUNGIN ACETATE
     Indication: ASPERGILLUS INFECTION
     Dosage: 70 MG, 1X/DAY (CUMULATIVE DOSE OF 5 G)
  2. VORICONAZOLE. [Concomitant]
     Active Substance: VORICONAZOLE
     Dosage: 1 DOSAGE FORM, QD
     Route: 042
  3. CASPOFUNGIN [Suspect]
     Active Substance: CASPOFUNGIN
     Indication: BRONCHOPULMONARY ASPERGILLOSIS
     Dosage: 70 MILLIGRAM, QD
  4. CASPOFUNGIN [Suspect]
     Active Substance: CASPOFUNGIN
     Indication: ANTIFUNGAL TREATMENT
     Dosage: 70 MILLIGRAM, QD
  5. AMPHOTERICIN B. [Concomitant]
     Active Substance: AMPHOTERICIN B
     Dosage: 1 DOSAGE FORM, QD (5 MG/KG/DAY, CUMULATIVE DOSE 4.75 G)
     Route: 061
  6. VORICONAZOLE. [Concomitant]
     Active Substance: VORICONAZOLE
     Indication: ASPERGILLUS INFECTION
     Dosage: 8 MILLIGRAM/KILOGRAM, QD
     Route: 042
  7. CASPOFUNGIN [Suspect]
     Active Substance: CASPOFUNGIN
     Indication: ASPERGILLUS INFECTION
     Dosage: 70 MILLIGRAM, QD
  8. AMPHOTERICIN B, LIPOSOME [Suspect]
     Active Substance: AMPHOTERICIN B
     Indication: BRONCHOPULMONARY ASPERGILLOSIS
     Dosage: 3 MG/KG, 1X/DAY (CUMULATIVE DOSE OF 5 G)
  9. AMPHOTERICIN B, LIPOSOME [Suspect]
     Active Substance: AMPHOTERICIN B
     Indication: ASPERGILLUS INFECTION
  10. AMPHOTERICIN B. [Concomitant]
     Active Substance: AMPHOTERICIN B
     Indication: ASPERGILLUS INFECTION
     Dosage: 1 DOSAGE FORM, QD (3 MG/KG/DAY TO A CUMULATIVE DOSE OF 5G)
     Route: 061
  11. AMPHOTERICIN B. [Concomitant]
     Active Substance: AMPHOTERICIN B
     Indication: ANTIFUNGAL TREATMENT
     Dosage: DAILY,TOPICAL WASHING WITH CONVENTIONAL DILUTED AMPHOTERICIN B
     Route: 061
  12. VORICONAZOLE. [Concomitant]
     Active Substance: VORICONAZOLE
     Indication: BRONCHOPULMONARY ASPERGILLOSIS
     Dosage: 12 MILLIGRAM/KILOGRAM, QD
     Route: 042
  13. VORICONAZOLE. [Concomitant]
     Active Substance: VORICONAZOLE
     Dosage: UNK, QD
     Route: 042
  14. AMPHOTERICIN B, LIPOSOME [Suspect]
     Active Substance: AMPHOTERICIN B
     Indication: ANTIFUNGAL TREATMENT
     Dosage: 5 MG/KG, 1X/DAY (SECOND CYCLE OF LIPOSOMAL) (CUMULATIVE DOSE OF 4.75 G)
  15. CANCIDAS [Suspect]
     Active Substance: CASPOFUNGIN ACETATE
     Indication: BRONCHOPULMONARY ASPERGILLOSIS
     Dosage: 70 MILLIGRAM, QD

REACTIONS (7)
  - Acute respiratory failure [Fatal]
  - Paraplegia [Not Recovered/Not Resolved]
  - Aspergillus infection [Unknown]
  - Product use in unapproved indication [Unknown]
  - Hypokalaemia [Unknown]
  - Drug ineffective [Fatal]
  - Proteinuria [Unknown]
